FAERS Safety Report 6287951-0 (Version None)
Quarter: 2009Q3

REPORT INFORMATION
  Report Type: 
  Country: None (occurrence: None)
  Receive Date: 20090729
  Receipt Date: 20090722
  Transmission Date: 20100115
  Serious: Yes (Hospitalization)
  Sender: FDA-Public Use
  Company Number: JP-EISAI INC.-E2090-00769-SPO-JP

PATIENT
  Sex: Female

DRUGS (6)
  1. EXCEGRAN [Suspect]
     Indication: EPILEPSY
     Route: 048
     Dates: start: 20080108
  2. PLAVIX [Concomitant]
     Indication: CEREBRAL INFARCTION
     Route: 048
     Dates: start: 20080115, end: 20080205
  3. GLUCONSAN K [Concomitant]
     Route: 048
     Dates: start: 20080105, end: 20080109
  4. TIZANIDINE HCL [Concomitant]
     Route: 048
     Dates: start: 20080109, end: 20080205
  5. MYSLEE [Concomitant]
     Route: 048
     Dates: start: 20080109, end: 20080204
  6. GLUCOBAY [Concomitant]
     Indication: DIABETES MELLITUS
     Route: 048
     Dates: start: 20080118, end: 20080205

REACTIONS (3)
  - HEPATIC FUNCTION ABNORMAL [None]
  - PYREXIA [None]
  - RASH [None]
